FAERS Safety Report 4645096-7 (Version None)
Quarter: 2005Q2

REPORT INFORMATION
  Report Type: 
  Country: None (occurrence: None)
  Receive Date: 20050422
  Receipt Date: 20050411
  Transmission Date: 20051028
  Serious: Yes (Other)
  Sender: FDA-Public Use
  Company Number: 050035

PATIENT
  Age: 35 Year
  Sex: Female
  Weight: 47.6277 kg

DRUGS (1)
  1. NULYTELY [Suspect]
     Indication: COLONOSCOPY
     Dosage: 4L/1X/PO
     Route: 048
     Dates: start: 20050405

REACTIONS (2)
  - HYPOGLYCAEMIA [None]
  - TREMOR [None]
